FAERS Safety Report 18106235 (Version 3)
Quarter: 2020Q3

REPORT INFORMATION
  Report Type: Spontaneous
  Country: IT (occurrence: IT)
  Receive Date: 20200803
  Receipt Date: 20200914
  Transmission Date: 20201103
  Serious: No
  Sender: FDA-Public Use
  Company Number: IT-JNJFOC-20200716158

PATIENT
  Age: 32 Year
  Sex: Female

DRUGS (1)
  1. SIMPONI [Suspect]
     Active Substance: GOLIMUMAB
     Indication: PRODUCT USED FOR UNKNOWN INDICATION
     Dosage: SIMPONI AUTOINJECTOR 50.00 MG / 0.50 ML
     Route: 058

REACTIONS (2)
  - Accidental exposure to product [Unknown]
  - Needle issue [Unknown]
